FAERS Safety Report 4306941-8 (Version None)
Quarter: 2004Q1

REPORT INFORMATION
  Report Type: 
  Country: None (occurrence: None)
  Receive Date: 20040225
  Receipt Date: 20040209
  Transmission Date: 20041129
  Serious: Yes (Other)
  Sender: FDA-Public Use
  Company Number: B0323025A

PATIENT
  Age: 69 Year
  Sex: Male

DRUGS (1)
  1. TEMOVATE [Suspect]
     Dosage: 50 GRAM(S)

REACTIONS (2)
  - ADRENAL CORTICAL INSUFFICIENCY [None]
  - PSORIASIS [None]
